FAERS Safety Report 7333510-8 (Version None)
Quarter: 2011Q1

REPORT INFORMATION
  Report Type: 
  Country: None (occurrence: None)
  Receive Date: 20110304
  Receipt Date: 20110218
  Transmission Date: 20110831
  Serious: Yes (Hospitalization, Other)
  Sender: FDA-Public Use
  Company Number: JP-CELGENEUS-087-21880-10110109

PATIENT
  Sex: Male

DRUGS (20)
  1. REVLIMID [Suspect]
     Indication: MULTIPLE MYELOMA
     Dosage: 10 MILLIGRAM
     Route: 048
     Dates: start: 20101015, end: 20101031
  2. AMLODIPINE [Concomitant]
     Indication: HYPERTENSION
     Dosage: 2.5 MILLIGRAM
     Route: 048
     Dates: start: 20101015, end: 20101125
  3. PURSENNID [Concomitant]
     Dosage: 48 MILLIGRAM
     Route: 048
     Dates: start: 20101015, end: 20101110
  4. LENADEX [Suspect]
     Indication: MULTIPLE MYELOMA
     Dosage: 40 MILLIGRAM
     Route: 048
     Dates: start: 20101015, end: 20101018
  5. TAKEPRON [Concomitant]
     Dosage: 15 MILLIGRAM
     Route: 048
     Dates: start: 20101015, end: 20101125
  6. LOXONIN [Concomitant]
     Dosage: 60 MILLIGRAM
     Route: 048
     Dates: start: 20101015, end: 20101125
  7. LENADEX [Suspect]
     Dosage: 20 MILLIGRAM
     Route: 048
     Dates: start: 20101023, end: 20101026
  8. MAGMITT [Concomitant]
     Dosage: 3 GRAM
     Route: 048
     Dates: start: 20101015, end: 20101110
  9. LAXOBERON [Concomitant]
     Dosage: 2.5 MILLIGRAM
     Route: 048
     Dates: start: 20101015, end: 20101110
  10. BAKTAR [Concomitant]
     Indication: PROPHYLAXIS
     Dosage: 2 TABLET
     Route: 048
     Dates: start: 20101015, end: 20101125
  11. FLUITRAN [Concomitant]
     Dosage: 2 MILLIGRAM
     Route: 048
     Dates: start: 20101015, end: 20101125
  12. WARFARIN SODIUM [Concomitant]
     Dosage: 1.5 MILLIGRAM
     Route: 048
     Dates: start: 20101019, end: 20101103
  13. LENADEX [Suspect]
     Dosage: 20 MILLIGRAM
     Route: 048
     Dates: start: 20101031, end: 20101101
  14. SPIRONOLACTONE [Concomitant]
     Dosage: 25 MILLIGRAM
     Route: 048
     Dates: start: 20101015, end: 20101028
  15. PROMAC [Concomitant]
     Dosage: 150 MILLIGRAM
     Route: 048
     Dates: start: 20101015, end: 20101125
  16. LASIX [Concomitant]
     Dosage: 20 MILLIGRAM
     Route: 048
     Dates: start: 20101015, end: 20101124
  17. OXYCONTIN [Concomitant]
     Dosage: 40 MILLIGRAM
     Route: 048
     Dates: start: 20101015, end: 20101101
  18. MUCOSTA [Concomitant]
     Dosage: 100 MILLIGRAM
     Route: 048
     Dates: start: 20101015, end: 20101125
  19. WARFARIN SODIUM [Concomitant]
     Dosage: 2 MILLIGRAM
     Route: 048
     Dates: start: 20101015, end: 20101018
  20. WARFARIN SODIUM [Concomitant]
     Dosage: 1 MILLIGRAM
     Route: 048
     Dates: start: 20101104, end: 20101107

REACTIONS (6)
  - DIABETES MELLITUS [None]
  - HYPOKALAEMIA [None]
  - HYPONATRAEMIA [None]
  - ORAL CANDIDIASIS [None]
  - PNEUMONIA ASPIRATION [None]
  - HEPATIC FUNCTION ABNORMAL [None]
